FAERS Safety Report 5008257-3 (Version None)
Quarter: 2006Q2

REPORT INFORMATION
  Report Type: 
  Country: None (occurrence: None)
  Receive Date: 20060523
  Receipt Date: 20060403
  Transmission Date: 20061013
  Serious: Yes (Other)
  Sender: FDA-Public Use
  Company Number: PHBS2006HU05083

PATIENT
  Age: 55 Year
  Sex: Female
  Weight: 68 kg

DRUGS (5)
  1. ZOMETA [Suspect]
     Indication: METASTASES TO BONE
     Dosage: 4 MG, EVERY 28 DAYS
     Route: 042
     Dates: start: 20020101, end: 20050101
  2. L-THYROXIN [Concomitant]
     Dosage: 100 MG/D
     Route: 065
  3. METOPROLOL TARTRATE [Concomitant]
     Dosage: 50 MG, TID
     Route: 065
  4. LETROZOLE [Concomitant]
     Dosage: 2.5 MG/D
     Route: 065
  5. AREDIA [Suspect]
     Indication: METASTASES TO BONE
     Dosage: 90 MG, EVERY 28 DAYS
     Route: 065
     Dates: start: 19940101, end: 20020101

REACTIONS (7)
  - IMPAIRED HEALING [None]
  - OSTEOMYELITIS [None]
  - OSTEONECROSIS [None]
  - PAIN [None]
  - PYREXIA [None]
  - SURGERY [None]
  - TOOTH EXTRACTION [None]
